FAERS Safety Report 13430910 (Version 6)
Quarter: 2017Q3

REPORT INFORMATION
  Report Type: Spontaneous
  Country: US (occurrence: US)
  Receive Date: 20170412
  Receipt Date: 20170915
  Transmission Date: 20171127
  Serious: Yes (Hospitalization, Other)
  Sender: FDA-Public Use
  Company Number: US-009507513-1704USA002152

PATIENT
  Sex: Female
  Weight: 76.6 kg

DRUGS (1)
  1. DULERA [Suspect]
     Active Substance: FORMOTEROL FUMARATE DIHYDRATE\MOMETASONE FUROATE
     Indication: PRODUCT USED FOR UNKNOWN INDICATION
     Dosage: 2 PUFFS DAILY
     Route: 055
     Dates: start: 20151027

REACTIONS (5)
  - Product quality issue [Unknown]
  - Cough [Unknown]
  - Dyspnoea [Unknown]
  - Foreign body in respiratory tract [Recovered/Resolved]
  - Oropharyngeal discomfort [Unknown]

NARRATIVE: CASE EVENT DATE: 20170317
